FAERS Safety Report 4490683-2 (Version None)
Quarter: 2004Q4

REPORT INFORMATION
  Report Type: 
  Country: None (occurrence: None)
  Receive Date: 20041102
  Receipt Date: 20041006
  Transmission Date: 20050328
  Serious: Yes (Hospitalization)
  Sender: FDA-Public Use
  Company Number: BE-GLAXOSMITHKLINE-B0347567A

PATIENT
  Age: 18 Year
  Sex: Female
  Weight: 50 kg

DRUGS (2)
  1. ZYBAN [Suspect]
     Dosage: 150MG TWICE PER DAY
     Route: 048
     Dates: start: 20040812, end: 20040829
  2. HARMONET [Concomitant]
     Indication: CONTRACEPTION
     Route: 048

REACTIONS (9)
  - ANGIONEUROTIC OEDEMA [None]
  - DYSPHAGIA [None]
  - DYSPNOEA [None]
  - OEDEMA PERIPHERAL [None]
  - PAIN [None]
  - RESPIRATORY DISORDER [None]
  - SWELLING FACE [None]
  - URTICARIA [None]
  - WHITE BLOOD CELL COUNT ABNORMAL [None]
